FAERS Safety Report 19014814 (Version 1)
Quarter: 2021Q1

REPORT INFORMATION
  Report Type: Spontaneous
  Country: CN (occurrence: CN)
  Receive Date: 20210317
  Receipt Date: 20210317
  Transmission Date: 20210420
  Serious: Yes (Other)
  Sender: FDA-Public Use
  Company Number: CN-ASTRAZENECA-2021A080453

PATIENT
  Sex: Male
  Weight: 60 kg

DRUGS (1)
  1. BREZTRI AEROSPHERE [Suspect]
     Active Substance: BUDESONIDE\FORMOTEROL\GLYCOPYRRONIUM
     Indication: CHRONIC OBSTRUCTIVE PULMONARY DISEASE
     Dosage: INHALE TWICE IN THE MORNING
     Route: 055
     Dates: start: 20200520

REACTIONS (3)
  - Rib fracture [Unknown]
  - Chest pain [Recovering/Resolving]
  - Osteoporosis [Unknown]
